FAERS Safety Report 23113194 (Version 1)
Quarter: 2023Q4

REPORT INFORMATION
  Report Type: Report from Study
  Country: JP (occurrence: JP)
  Receive Date: 20231027
  Receipt Date: 20231027
  Transmission Date: 20240110
  Serious: Yes (Other)
  Sender: FDA-Public Use
  Company Number: JP-TAKEDA-2023TJP013703

PATIENT
  Age: 65 Year
  Sex: Female
  Weight: 75 kg

DRUGS (10)
  1. PANITUMUMAB [Suspect]
     Active Substance: PANITUMUMAB
     Indication: Rectal adenocarcinoma
     Dosage: 450 MILLIGRAM, Q2WK
     Route: 065
     Dates: start: 20201127, end: 20210125
  2. PANITUMUMAB [Suspect]
     Active Substance: PANITUMUMAB
     Dosage: 360 MILLIGRAM, Q2WK
     Route: 065
     Dates: start: 20210208, end: 20210222
  3. PANITUMUMAB [Suspect]
     Active Substance: PANITUMUMAB
     Dosage: 270 MILLIGRAM
     Route: 065
     Dates: start: 20210322, end: 20210322
  4. PANITUMUMAB [Suspect]
     Active Substance: PANITUMUMAB
     Dosage: 270 MILLIGRAM, Q2WK
     Route: 065
     Dates: start: 20210412, end: 20210426
  5. PANITUMUMAB [Suspect]
     Active Substance: PANITUMUMAB
     Dosage: 270 MILLIGRAM
     Route: 065
     Dates: start: 20210517, end: 20210517
  6. PANITUMUMAB [Suspect]
     Active Substance: PANITUMUMAB
     Dosage: 270 MILLIGRAM
     Route: 065
     Dates: start: 20210607
  7. IRINOTECAN [Suspect]
     Active Substance: IRINOTECAN
     Indication: Rectal adenocarcinoma
     Dosage: 200 MILLIGRAM, Q2WEEKS
     Route: 065
     Dates: start: 20201127, end: 20210322
  8. IRINOTECAN [Suspect]
     Active Substance: IRINOTECAN
     Dosage: 200 MILLIGRAM, Q2WEEKS
     Route: 065
     Dates: start: 20210412, end: 20210426
  9. IRINOTECAN [Suspect]
     Active Substance: IRINOTECAN
     Dosage: 160 MILLIGRAM
     Route: 065
     Dates: start: 20210517, end: 20210517
  10. IRINOTECAN [Suspect]
     Active Substance: IRINOTECAN
     Dosage: 160 MILLIGRAM
     Route: 065
     Dates: start: 20210607, end: 20210607

REACTIONS (9)
  - Platelet count decreased [Unknown]
  - Blepharitis [Unknown]
  - Dermatitis acneiform [Unknown]
  - Diarrhoea [Unknown]
  - Nausea [Unknown]
  - Skin fissures [Unknown]
  - Epistaxis [Unknown]
  - Rash [Unknown]
  - Dry skin [Unknown]
